FAERS Safety Report 7129808-9 (Version None)
Quarter: 2010Q4

REPORT INFORMATION
  Report Type: 
  Country: None (occurrence: None)
  Receive Date: 20101130
  Receipt Date: 20100820
  Transmission Date: 20110411
  Serious: Yes (Other)
  Sender: FDA-Public Use
  Company Number: US-AMGEN-QUU416010

PATIENT

DRUGS (7)
  1. NPLATE [Suspect]
     Indication: IDIOPATHIC THROMBOCYTOPENIC PURPURA
     Dosage: 6 A?G/KG, UNK
     Route: 058
     Dates: start: 20100217, end: 20100505
  2. CORTICOSTEROID NOS [Concomitant]
     Dosage: UNK UNK, UNK
     Dates: start: 20091018
  3. IMMUNOGLOBULIN HUMAN ANTI-RH [Concomitant]
     Dosage: UNK UNK, UNK
     Dates: start: 20090813
  4. PREDNISONE [Concomitant]
     Dosage: UNK UNK, BID
     Dates: start: 20091101
  5. ACETAMINOPHEN [Concomitant]
     Dosage: 200 MG, PRN
  6. RANITIDINE HYDROCHLORIDE [Concomitant]
     Dosage: 15 MG, BID
     Route: 048
  7. TRIMETHOPRIM + SULFAMETHOXAZOLE [Concomitant]
     Dosage: 40 MG, UNK
     Route: 048

REACTIONS (1)
  - THERAPEUTIC RESPONSE DECREASED [None]
